FAERS Safety Report 15125813 (Version 11)
Quarter: 2024Q1

REPORT INFORMATION
  Report Type: Spontaneous
  Country: DE (occurrence: DE)
  Receive Date: 20180710
  Receipt Date: 20240322
  Transmission Date: 20240410
  Serious: Yes (Death, Disabling, Congenital Anomaly, Other)
  Sender: FDA-Public Use
  Company Number: None

PATIENT
  Sex: Female
  Weight: 0 kg

DRUGS (39)
  1. TACROLIMUS [Suspect]
     Active Substance: TACROLIMUS
     Indication: Foetal exposure during pregnancy
     Dosage: FROM GESTATIONAL WEEK 0-14
     Dates: start: 20111214, end: 20120320
  2. SIMVASTATIN [Suspect]
     Active Substance: SIMVASTATIN
     Indication: Foetal exposure during pregnancy
     Dosage: FROM GESTATIONAL WEEK 0-14?TABLET
     Dates: start: 20111214, end: 20120320
  3. SIMVASTATIN [Suspect]
     Active Substance: SIMVASTATIN
     Indication: Foetal exposure during pregnancy
     Dosage: FROM GESTATIONAL WEEK 0-14
  4. PREDNISOLONE [Suspect]
     Active Substance: PREDNISOLONE
     Indication: Foetal exposure during pregnancy
     Dosage: FROM GESTATIONAL WEEK 0-14
  5. PREDNISOLONE [Suspect]
     Active Substance: PREDNISOLONE
     Indication: Foetal exposure during pregnancy
     Dosage: FROM GESTATIONAL WEEK 0-14?TABLET
     Dates: start: 20111214, end: 20120320
  6. ALBUTEROL [Suspect]
     Active Substance: ALBUTEROL
     Indication: Foetal exposure during pregnancy
     Dosage: FROM GESTATIONAL WEEK 0-14
  7. ALBUTEROL [Suspect]
     Active Substance: ALBUTEROL
     Indication: Foetal exposure during pregnancy
     Dosage: FROM GESTATIONAL WEEK 0-14
  8. RAMIPRIL [Suspect]
     Active Substance: RAMIPRIL
     Indication: Foetal exposure during pregnancy
     Dosage: DOSE DESCRIPTION : 20 MG, UNKNOWN FREQ. (0-13+6 GW)
     Dates: start: 20111214, end: 20120320
  9. RAMIPRIL [Suspect]
     Active Substance: RAMIPRIL
     Indication: Hypertension
     Dosage: DOSE DESCRIPTION : 20 MG, UNKNOWN FREQ. (0-13+6 GW)
     Dates: start: 20111214, end: 20120320
  10. PANTOPRAZOLE [Suspect]
     Active Substance: PANTOPRAZOLE
     Indication: Foetal exposure during pregnancy
     Dosage: 40 [MG/D]; 0-13.6 GESTATIONAL WEEK
     Dates: start: 20111214, end: 20120320
  11. PANTOPRAZOLE [Suspect]
     Active Substance: PANTOPRAZOLE
     Indication: Foetal exposure during pregnancy
     Dosage: FROM GESTATIONAL WEEK 0-14
  12. NICOTINE [Suspect]
     Active Substance: NICOTINE
     Indication: Foetal exposure during pregnancy
     Dosage: FROM GESTATIONAL WEEK 0-14
  13. NICOTINE [Suspect]
     Active Substance: NICOTINE
     Indication: Foetal exposure during pregnancy
     Dosage: FROM GESTATIONAL WEEK 0-14
  14. HYDROXYCHLOROQUINE [Suspect]
     Active Substance: HYDROXYCHLOROQUINE
     Indication: Foetal exposure during pregnancy
     Dosage: FROM GESTATIONAL WEEK 0-14
  15. HYDROXYCHLOROQUINE [Suspect]
     Active Substance: HYDROXYCHLOROQUINE
     Indication: Foetal exposure during pregnancy
     Dosage: FROM GESTATIONAL WEEK 0-14
     Dates: start: 20111214, end: 20120320
  16. TORSEMIDE [Suspect]
     Active Substance: TORSEMIDE
     Indication: Foetal exposure during pregnancy
     Dosage: FROM GESTATIONAL WEEK 0-14
     Dates: start: 20111214, end: 20120320
  17. TORSEMIDE [Suspect]
     Active Substance: TORSEMIDE
     Indication: Foetal exposure during pregnancy
     Dosage: FROM GESTATIONAL WEEK 0-14
  18. METAMIZOLE [Suspect]
     Active Substance: METAMIZOLE
     Indication: Foetal exposure during pregnancy
     Dosage: FROM GESTATIONAL WEEK 0-14
  19. EZETIMIBE [Suspect]
     Active Substance: EZETIMIBE
     Indication: Foetal exposure during pregnancy
     Dosage: FROM GESTATIONAL WEEK 0-14?TABLET
  20. EZETIMIBE [Suspect]
     Active Substance: EZETIMIBE
     Indication: Foetal exposure during pregnancy
     Dosage: FROM GESTATIONAL WEEK 0-14
  21. ALISKIREN [Suspect]
     Active Substance: ALISKIREN
     Indication: Foetal exposure during pregnancy
  22. ALISKIREN [Suspect]
     Active Substance: ALISKIREN
     Indication: Foetal exposure during pregnancy
     Dosage: 300 [MG/D]; 0-4.6 GESTATIONAL WEEK
     Dates: start: 20111214, end: 20120117
  23. XARELTO [Suspect]
     Active Substance: RIVAROXABAN
     Indication: Foetal exposure during pregnancy
     Dosage: FROM GESTATIONAL WEEK 0-5
  24. XARELTO [Suspect]
     Active Substance: RIVAROXABAN
     Indication: Foetal exposure during pregnancy
     Dosage: FROM GESTATIONAL WEEK 0-5
  25. MIFEPRISTONE [Concomitant]
     Active Substance: MIFEPRISTONE
     Indication: Abortion induced
     Dosage: UNK; 13.6 GESTATIONAL WEEK
     Dates: start: 20120320, end: 20120320
  26. ASPIRIN [Suspect]
     Active Substance: ASPIRIN
     Indication: Foetal exposure during pregnancy
     Dosage: FROM GESTATIONAL WEEK 0-14
     Dates: start: 20111214, end: 20120320
  27. ENOXAPARIN SODIUM [Suspect]
     Active Substance: ENOXAPARIN SODIUM
     Indication: Pulmonary embolism
     Dosage: 200 MG/D (2X100)
     Dates: start: 20111214, end: 20120320
  28. ENOXAPARIN SODIUM [Suspect]
     Active Substance: ENOXAPARIN SODIUM
     Indication: Pulmonary embolism
     Dosage: FROM GESTATIONAL WEEK 0-14
  29. INNOHEP [Suspect]
     Active Substance: TINZAPARIN SODIUM
     Indication: Foetal exposure during pregnancy
     Dosage: UNK
  30. UNSPECIFIED INGREDIENT [Suspect]
     Active Substance: UNSPECIFIED INGREDIENT
     Indication: Foetal exposure during pregnancy
     Dosage: UNK
  31. HEPARIN [Suspect]
     Active Substance: HEPARIN SODIUM
     Indication: Product used for unknown indication
  32. RITUXIMAB [Suspect]
     Active Substance: RITUXIMAB
     Indication: Foetal exposure during pregnancy
     Dosage: LAST TIME IN DECEMBER 2011: PRE OR PERICONCEPTIONAL
     Dates: start: 201112
  33. RITUXIMAB [Suspect]
     Active Substance: RITUXIMAB
     Indication: Foetal exposure during pregnancy
  34. RITUXIMAB [Suspect]
     Active Substance: RITUXIMAB
     Indication: Systemic lupus erythematosus
     Dosage: LAST TIME IN DECEMBER 2011: PRE OR PERICONCEPTIONAL
     Dates: start: 201112
  35. RITUXIMAB [Suspect]
     Active Substance: RITUXIMAB
     Indication: Systemic lupus erythematosus
  36. METAMIZOLE [Suspect]
     Active Substance: METAMIZOLE
     Indication: Foetal exposure during pregnancy
     Dosage: UNK; TRIMESTER: FIRST; PROBABLY ONLY IN HOSPITAL IN WEEK 5
  37. METAMIZOLE [Suspect]
     Active Substance: METAMIZOLE
     Indication: Foetal exposure during pregnancy
     Dosage: UNK; TRIMESTER: FIRST; PROBABLY ONLY IN HOSPITAL IN WEEK 5
  38. CYCLOPHOSPHAMIDE [Concomitant]
     Active Substance: CYCLOPHOSPHAMIDE
     Indication: Systemic lupus erythematosus
     Dosage: 3000 [MG CUMULATIVE]; PRECONCEPTIONAL
     Dates: start: 201104, end: 201108
  39. CYTOTEC [Concomitant]
     Active Substance: MISOPROSTOL
     Indication: Abortion induced
     Dosage: UNK; 13.6 GESTATIONAL WEEK
     Dates: start: 20120320, end: 20120320

REACTIONS (10)
  - Low birth weight baby [Unknown]
  - Abortion induced [Fatal]
  - Foetal exposure during pregnancy [Unknown]
  - Cardiac septal defect [Fatal]
  - Premature baby [Unknown]
  - Foetal exposure during pregnancy [Fatal]
  - Congenital cardiovascular anomaly [Fatal]
  - Truncus arteriosus persistent [Fatal]
  - Heart disease congenital [Fatal]
  - Ventricular septal defect [Fatal]
